FAERS Safety Report 10908390 (Version 2)
Quarter: 2017Q1

REPORT INFORMATION
  Report Type: Spontaneous
  Country: FR (occurrence: FR)
  Receive Date: 20150312
  Receipt Date: 20170112
  Transmission Date: 20170428
  Serious: Yes (Hospitalization)
  Sender: FDA-Public Use
  Company Number: FR-PFIZER INC-2015085295

PATIENT
  Age: 74 Year
  Sex: Male

DRUGS (6)
  1. SMOFKABIVEN [Suspect]
     Active Substance: UNSPECIFIED INGREDIENT
     Dosage: 1000 ML, DAILY
     Route: 042
     Dates: start: 20140823, end: 20140825
  2. EUPANTOL [Suspect]
     Active Substance: PANTOPRAZOLE SODIUM
     Dosage: 40 MG, DAILY
     Route: 042
     Dates: start: 20140817, end: 20140831
  3. METRONIDAZOLE B BRAUN [Suspect]
     Active Substance: METRONIDAZOLE
     Indication: SEPTIC SHOCK
     Dosage: 1500 MG, DAILY
     Route: 042
     Dates: start: 20140815, end: 20140822
  4. PIPERACILLINE / TAZOBACTAM MYLAN [Suspect]
     Active Substance: PIPERACILLIN SODIUM\TAZOBACTAM SODIUM
     Indication: SEPTIC SHOCK
     Dosage: 3 DF, DAILY
     Route: 042
     Dates: start: 20140815, end: 20140822
  5. SMOFKABIVEN [Suspect]
     Active Substance: UNSPECIFIED INGREDIENT
     Indication: PARENTERAL NUTRITION
     Dosage: 1500 MG, DAILY
     Route: 042
     Dates: start: 20140817, end: 20140822
  6. SONDALIS HP [Suspect]
     Active Substance: AMINO ACIDS\DEXTROSE\ELECTROLYTES NOS\SOYBEAN OIL\VITAMINS
     Indication: ENTERAL NUTRITION
     Dosage: 1.5 TO 2 L, DAILY
     Route: 048
     Dates: start: 20140822

REACTIONS (2)
  - Cholestasis [Not Recovered/Not Resolved]
  - Hepatocellular injury [Not Recovered/Not Resolved]

NARRATIVE: CASE EVENT DATE: 20140819
